FAERS Safety Report 15374358 (Version 1)
Quarter: 2018Q3

REPORT INFORMATION
  Report Type: Spontaneous
  Country: US (occurrence: US)
  Receive Date: 20180912
  Receipt Date: 20180912
  Transmission Date: 20181010
  Serious: No
  Sender: FDA-Public Use
  Company Number: US-UNICHEM PHARMACEUTICALS (USA) INC-UCM201710-000271

PATIENT
  Sex: Male

DRUGS (1)
  1. CLONIDINE HCL 0.2 MG TABLET [Suspect]
     Active Substance: CLONIDINE HYDROCHLORIDE
     Dates: start: 20171023

REACTIONS (1)
  - Dizziness [Recovered/Resolved]
